FAERS Safety Report 12947182 (Version 1)
Quarter: 2016Q4

REPORT INFORMATION
  Report Type: Spontaneous
  Country: US (occurrence: US)
  Receive Date: 20161116
  Receipt Date: 20161116
  Transmission Date: 20170207
  Serious: No
  Sender: FDA-Public Use
  Company Number: None

PATIENT
  Age: 65 Year
  Sex: Female
  Weight: 78.54 kg

DRUGS (1)
  1. ACCLEAN CHLORHEXIDINE GLUCONATE 0.12% ORAL RINSE [Suspect]
     Active Substance: CHLORHEXIDINE GLUCONATE
     Indication: GINGIVITIS
     Dosage: 3X A DAY MOUTH (GARGLE YOUR MOUTH OUT
     Route: 048
     Dates: start: 201609

REACTIONS (3)
  - Oral discomfort [None]
  - Gingival swelling [None]
  - Dysgeusia [None]
